FAERS Safety Report 17359573 (Version 3)
Quarter: 2023Q4

REPORT INFORMATION
  Report Type: Spontaneous
  Country: US (occurrence: US)
  Receive Date: 20200203
  Receipt Date: 20231011
  Transmission Date: 20240110
  Serious: Yes (Other)
  Sender: FDA-Public Use
  Company Number: US-GILEAD-2020-0448774

PATIENT
  Age: 48 Year
  Sex: Male
  Weight: 97.506 kg

DRUGS (22)
  1. TRUVADA [Suspect]
     Active Substance: EMTRICITABINE\TENOFOVIR DISOPROXIL FUMARATE
     Indication: HIV infection
     Dosage: UNK
     Route: 048
     Dates: start: 2004, end: 201803
  2. TRUVADA [Suspect]
     Active Substance: EMTRICITABINE\TENOFOVIR DISOPROXIL FUMARATE
     Dosage: UNK
     Route: 048
     Dates: start: 201006, end: 201803
  3. VIREAD [Suspect]
     Active Substance: TENOFOVIR DISOPROXIL FUMARATE
     Indication: HIV infection
     Dosage: UNK
     Route: 048
     Dates: start: 2003, end: 200909
  4. VIREAD [Suspect]
     Active Substance: TENOFOVIR DISOPROXIL FUMARATE
     Dosage: UNK
     Route: 048
     Dates: start: 2003, end: 201006
  5. BIKTARVY [Concomitant]
     Active Substance: BICTEGRAVIR SODIUM\EMTRICITABINE\TENOFOVIR ALAFENAMIDE FUMARATE
  6. DESCOVY [Concomitant]
     Active Substance: EMTRICITABINE\TENOFOVIR ALAFENAMIDE FUMARATE
  7. COMBIVIR [Concomitant]
     Active Substance: LAMIVUDINE\ZIDOVUDINE
  8. EPIVIR [Concomitant]
     Active Substance: LAMIVUDINE
  9. INVIRASE [Concomitant]
     Active Substance: SAQUINAVIR MESYLATE
  10. ISENTRESS [Concomitant]
     Active Substance: RALTEGRAVIR POTASSIUM
  11. JULUCA [Concomitant]
     Active Substance: DOLUTEGRAVIR SODIUM\RILPIVIRINE HYDROCHLORIDE
  12. KALETRA [Concomitant]
     Active Substance: LOPINAVIR\RITONAVIR
  13. NORVIR [Concomitant]
     Active Substance: RITONAVIR
  14. PIFELTRO [Concomitant]
     Active Substance: DORAVIRINE
  15. RETROVIR [Concomitant]
     Active Substance: ZIDOVUDINE
  16. REYATAZ [Concomitant]
     Active Substance: ATAZANAVIR SULFATE
  17. TROGARZO [IBALIZUMAB-UIYK] [Concomitant]
  18. CHOLECALCIFEROL [Concomitant]
     Active Substance: CHOLECALCIFEROL
     Dosage: UNK
     Dates: start: 2012
  19. VIAGRA [Concomitant]
     Active Substance: SILDENAFIL CITRATE
  20. DILTIAZEM [Concomitant]
     Active Substance: DILTIAZEM
  21. CELECOXIB [Concomitant]
     Active Substance: CELECOXIB
  22. TERAZOSIN [Concomitant]
     Active Substance: TERAZOSIN HYDROCHLORIDE

REACTIONS (10)
  - End stage renal disease [Not Recovered/Not Resolved]
  - Chronic kidney disease [Not Recovered/Not Resolved]
  - Acute kidney injury [Not Recovered/Not Resolved]
  - Sexual dysfunction [Not Recovered/Not Resolved]
  - Depression [Not Recovered/Not Resolved]
  - Pain [Not Recovered/Not Resolved]
  - Emotional distress [Not Recovered/Not Resolved]
  - Anxiety [Not Recovered/Not Resolved]
  - Anhedonia [Not Recovered/Not Resolved]
  - Economic problem [Not Recovered/Not Resolved]

NARRATIVE: CASE EVENT DATE: 20110601
